FAERS Safety Report 9297736 (Version 1)
Quarter: 2013Q2

REPORT INFORMATION
  Report Type: Spontaneous
  Country: US (occurrence: US)
  Receive Date: 20130520
  Receipt Date: 20130520
  Transmission Date: 20140414
  Serious: Yes (Hospitalization)
  Sender: FDA-Public Use
  Company Number: US-BAYER-2013-062282

PATIENT
  Age: 44 Year
  Sex: Female

DRUGS (4)
  1. YAZ [Suspect]
  2. DIOVAN [Concomitant]
  3. LORTAB [Concomitant]
  4. DIOVAN HCT [Concomitant]

REACTIONS (2)
  - Deep vein thrombosis [None]
  - Deep vein thrombosis [None]
